FAERS Safety Report 7110994-1 (Version None)
Quarter: 2010Q4

REPORT INFORMATION
  Report Type: 
  Country: None (occurrence: None)
  Receive Date: 20101118
  Receipt Date: 20101112
  Transmission Date: 20110411
  Serious: Yes (Hospitalization, Other)
  Sender: FDA-Public Use
  Company Number: CA-JNJFOC-20101105009

PATIENT
  Sex: Male
  Weight: 83.1 kg

DRUGS (11)
  1. REMICADE [Suspect]
     Indication: CROHN'S DISEASE
     Route: 042
  2. CALCIUM [Concomitant]
  3. ACTONEL [Concomitant]
  4. IMURAN [Concomitant]
  5. PAXIL [Concomitant]
  6. EZETROL [Concomitant]
  7. METOPROLOL [Concomitant]
  8. ZOCOR [Concomitant]
  9. ALTACE [Concomitant]
  10. ASPIRIN [Concomitant]
  11. NITRO SPRAY [Concomitant]

REACTIONS (1)
  - MYOCARDIAL INFARCTION [None]
